FAERS Safety Report 17842868 (Version 4)
Quarter: 2020Q3

REPORT INFORMATION
  Report Type: Report from Study
  Country: None (occurrence: CO)
  Receive Date: 20200530
  Receipt Date: 20200710
  Transmission Date: 20201103
  Serious: Yes (Hospitalization, Other)
  Sender: FDA-Public Use
  Company Number: CO-ABBVIE-20K-036-3425106-00

PATIENT
  Age: 29 Year
  Sex: Male

DRUGS (1)
  1. HUMIRA [Suspect]
     Active Substance: ADALIMUMAB
     Indication: CROHN^S DISEASE
     Route: 058
     Dates: start: 20190927

REACTIONS (5)
  - Metabolic disorder [Recovered/Resolved]
  - Immunosuppression [Not Recovered/Not Resolved]
  - Post procedural diarrhoea [Recovered/Resolved]
  - Intestinal obstruction [Recovered/Resolved]
  - Malnutrition [Recovered/Resolved]

NARRATIVE: CASE EVENT DATE: 2020
